FAERS Safety Report 4979083-6 (Version None)
Quarter: 2006Q2

REPORT INFORMATION
  Report Type: 
  Country: None (occurrence: None)
  Receive Date: 20060421
  Receipt Date: 20060407
  Transmission Date: 20061013
  Serious: Yes (Hospitalization)
  Sender: FDA-Public Use
  Company Number: FRWYE540407APR06

PATIENT
  Age: 67 Year
  Sex: Female

DRUGS (5)
  1. ENBREL [Suspect]
     Indication: RHEUMATOID ARTHRITIS
     Dosage: 50 MG TOTAL WEEKLY
     Route: 058
     Dates: start: 20030801, end: 20060201
  2. NOVATREX [Suspect]
     Indication: RHEUMATOID ARTHRITIS
     Dosage: 10 MG TOTAL WEEKLY
     Route: 048
     Dates: start: 19920101, end: 20060201
  3. SPECIAFOLDINE [Concomitant]
     Dosage: 10 MG TOTAL WEEKLY
     Route: 048
  4. CALCIUM CARBONATE [Concomitant]
     Dosage: 1 G TOTAL DAILY
     Route: 048
  5. COLECALCIFEROL [Concomitant]
     Dosage: 1 G TOTAL DAILY
     Route: 048

REACTIONS (2)
  - CARDIAC MURMUR [None]
  - CHRONIC LYMPHOCYTIC LEUKAEMIA [None]
